FAERS Safety Report 13772147 (Version 3)
Quarter: 2017Q4

REPORT INFORMATION
  Report Type: Spontaneous
  Country: IT (occurrence: IT)
  Receive Date: 20170720
  Receipt Date: 20171108
  Transmission Date: 20180320
  Serious: Yes (Other)
  Sender: FDA-Public Use
  Company Number: IT-TEVA-781956ACC

PATIENT
  Age: 1 Year
  Sex: Female
  Weight: 10.64 kg

DRUGS (1)
  1. AMOXICILLIN TRIHYDRATE [Suspect]
     Active Substance: AMOXICILLIN
     Indication: PNEUMONIA
     Route: 048
     Dates: start: 20160916, end: 20160916

REACTIONS (2)
  - Urticaria [Recovered/Resolved]
  - Pruritus generalised [Recovered/Resolved]

NARRATIVE: CASE EVENT DATE: 20160916
